FAERS Safety Report 9231208 (Version 1)
Quarter: 2013Q2

REPORT INFORMATION
  Report Type: Spontaneous
  Country: GB (occurrence: GB)
  Receive Date: 20130415
  Receipt Date: 20130415
  Transmission Date: 20140414
  Serious: Yes (Disabling)
  Sender: FDA-Public Use
  Company Number: PHHY2013GB034825

PATIENT
  Age: 74 Year
  Sex: Male
  Weight: 77 kg

DRUGS (1)
  1. RAMIPRIL [Suspect]

REACTIONS (2)
  - Myelodysplastic syndrome [Not Recovered/Not Resolved]
  - Mouth ulceration [Recovering/Resolving]
